FAERS Safety Report 9409525 (Version 1)
Quarter: 2013Q3

REPORT INFORMATION
  Report Type: Spontaneous
  Country: IT (occurrence: IT)
  Receive Date: 20130719
  Receipt Date: 20130719
  Transmission Date: 20140515
  Serious: Yes (Hospitalization)
  Sender: FDA-Public Use
  Company Number: IT-ABBOTT-13X-083-1073765-00

PATIENT
  Age: 2 Year
  Sex: Male
  Weight: 14 kg

DRUGS (3)
  1. KLACID [Suspect]
     Indication: PYREXIA
     Route: 048
     Dates: start: 20130321, end: 20130322
  2. AUGMENTIN [Suspect]
     Indication: EAR INFECTION
     Route: 048
     Dates: start: 20130315, end: 20130320
  3. NUROFEN [Suspect]
     Indication: EAR INFECTION
     Route: 048
     Dates: start: 20130321, end: 20130322

REACTIONS (3)
  - Erythema infectiosum [Unknown]
  - Rash macular [Recovered/Resolved]
  - Erythema [Recovering/Resolving]
